FAERS Safety Report 10373089 (Version 1)
Quarter: 2014Q3

REPORT INFORMATION
  Report Type: Spontaneous
  Country: US (occurrence: US)
  Receive Date: 20140808
  Receipt Date: 20140808
  Transmission Date: 20150326
  Serious: No
  Sender: FDA-Public Use
  Company Number: US-BRISTOL-MYERS SQUIBB COMPANY-19979970

PATIENT
  Age: 74 Year
  Sex: Female
  Weight: 75.28 kg

DRUGS (4)
  1. CARVEDILOL. [Concomitant]
     Active Substance: CARVEDILOL
  2. NORVASC [Concomitant]
     Active Substance: AMLODIPINE BESYLATE
     Indication: HYPERTENSION
  3. SPRYCEL [Suspect]
     Active Substance: DASATINIB
  4. ASPIRIN. [Concomitant]
     Active Substance: ASPIRIN

REACTIONS (2)
  - Headache [Unknown]
  - Urinary tract infection [Recovered/Resolved]
